FAERS Safety Report 15494769 (Version 1)
Quarter: 2018Q4

REPORT INFORMATION
  Report Type: Report from Study
  Country: US (occurrence: US)
  Receive Date: 20181012
  Receipt Date: 20181012
  Transmission Date: 20190205
  Serious: Yes (Hospitalization)
  Sender: FDA-Public Use
  Company Number: US-PFIZER INC-2018398046

PATIENT
  Age: 64 Year
  Sex: Female

DRUGS (13)
  1. PEGFILGRASTIM [Suspect]
     Active Substance: PEGFILGRASTIM
     Dosage: 6 MG, CYCLIC(REGIMEN B: ON DAY4 UNTIL RECOVERY OF GRANULOCYTE COUNT)
     Route: 058
  2. RITUXIMAB. [Suspect]
     Active Substance: RITUXIMAB
     Dosage: 375 MG/M2, CYCLIC(REGIMENT B: ON DAY 2 AND 8 OF CYCLES 2 AND 4)
     Route: 042
  3. INOTUZUMAB OZOGAMICIN [Suspect]
     Active Substance: INOTUZUMAB OZOGAMICIN
     Indication: ACUTE LYMPHOCYTIC LEUKAEMIA
     Dosage: 0.3 MG/M2, CYCLIC(REGIMENT A: OVER 1 HOUR ON DAY 3)
     Route: 042
     Dates: start: 20180718
  4. VINCRISTINE SULFATE. [Suspect]
     Active Substance: VINCRISTINE SULFATE
     Dosage: 2 MG, CYCLIC(REGIMENT A: DAY 1 AND DAY 8)
     Route: 042
  5. METHOTREXATE SODIUM. [Suspect]
     Active Substance: METHOTREXATE SODIUM
     Dosage: 50 MG/M2, CYCLIC(REGIMENT B: OVER 2HRS ON DAY 1)
     Route: 042
  6. METHOTREXATE SODIUM. [Suspect]
     Active Substance: METHOTREXATE SODIUM
     Dosage: 200 MG/M2, CYCLIC(REGIMENT B: CONTINUOUS INFUSION OVER 22 HOURS ON DAY 1)
  7. INOTUZUMAB OZOGAMICIN [Suspect]
     Active Substance: INOTUZUMAB OZOGAMICIN
     Dosage: REGIMENT B: ON DAY 2 OR 3 (CYCLES 2 AND 4 ONLY)
     Route: 042
  8. CYCLOPHOSPHAMIDE. [Suspect]
     Active Substance: CYCLOPHOSPHAMIDE
     Dosage: 150 MG/M2, CYCLIC(REGIMENT A: OVER 3 HOURS TWICE A DAY ON DAYS 1-3)
     Route: 042
  9. CYTARABINE. [Suspect]
     Active Substance: CYTARABINE
     Dosage: 500 MG/M2, CYCLIC(REGIMENT B: OVER 3 HOURS TWICE A DAYX4 DOSES ON DAYS 2 AND 3)
     Route: 042
  10. PEGFILGRASTIM [Suspect]
     Active Substance: PEGFILGRASTIM
     Dosage: 6 MG, CYCLIC(REGIMEN A: ON DAY4 UNTIL RECOVERY OF GRANULOCYTE COUNT)
     Route: 058
  11. MESNA. [Suspect]
     Active Substance: MESNA
     Dosage: 300 MG/M2, CYCLIC(REGIMENT A: DAILY OVER 24 HOURS FOR 3 DAYS ON DAYS 1-3)
     Route: 042
  12. DEXAMETHASONE. [Suspect]
     Active Substance: DEXAMETHASONE
     Dosage: 20 MG, CYCLIC(REGIMENT A: DAILY FOR 4 DAYS ON DAYS 1-4 AND DAYS 11-14)
     Route: 042
  13. RITUXIMAB. [Suspect]
     Active Substance: RITUXIMAB
     Dosage: 375 MG/M2, CYCLIC[REGIMENT A: ON DAY 2 AND DAY 8 (CYCLES 1 AND 3 ONLY)]
     Route: 042

REACTIONS (1)
  - Hyperglycaemia [Recovered/Resolved]

NARRATIVE: CASE EVENT DATE: 20180917
